FAERS Safety Report 4811813-6 (Version None)
Quarter: 2005Q4

REPORT INFORMATION
  Report Type: 
  Country: None (occurrence: None)
  Receive Date: 20051026
  Receipt Date: 20051013
  Transmission Date: 20060501
  Serious: Yes (Death, Hospitalization)
  Sender: FDA-Public Use
  Company Number: 2005142119

PATIENT
  Sex: Female

DRUGS (5)
  1. SILDENAFIL CITRATE [Suspect]
     Indication: PULMONARY HYPERTENSION
     Dosage: 150 MG (50 MG, DAILY INTERVAL: EVERYDAY), ORAL
     Route: 048
     Dates: start: 20010101, end: 20051012
  2. SPIRONOLACTONE [Concomitant]
  3. FLUOXETINE [Concomitant]
  4. WARFARIN SODIUM [Concomitant]
  5. ALL OTHER THERAPEUTIC PRODUCTS (ALL OTHER THERAPEUTIC PRODUCTS) [Concomitant]

REACTIONS (3)
  - ABDOMINAL PAIN [None]
  - POST PROCEDURAL COMPLICATION [None]
  - SPLENECTOMY [None]
